FAERS Safety Report 9434571 (Version 1)
Quarter: 2013Q3

REPORT INFORMATION
  Report Type: Spontaneous
  Country: CN (occurrence: CN)
  Receive Date: 20130801
  Receipt Date: 20130801
  Transmission Date: 20140515
  Serious: Yes (Hospitalization)
  Sender: FDA-Public Use
  Company Number: CN-ASTRAZENECA-2013SE56570

PATIENT
  Age: 83 Year
  Sex: Male

DRUGS (2)
  1. BICALUTAMIDE [Suspect]
     Indication: PROSTATE CANCER
     Route: 048
     Dates: start: 20110725, end: 20110812
  2. RADIATION THERAPY [Concomitant]

REACTIONS (1)
  - Thrombocytopenia [Recovered/Resolved]
